FAERS Safety Report 8261888-X (Version None)
Quarter: 2012Q2

REPORT INFORMATION
  Report Type: 
  Country: None (occurrence: None)
  Receive Date: 20120405
  Receipt Date: 20120327
  Transmission Date: 20120825
  Serious: Yes (Hospitalization, Other)
  Sender: FDA-Public Use
  Company Number: JP-TEVA-2011003388

PATIENT
  Sex: Male
  Weight: 48.2 kg

DRUGS (16)
  1. ACYCLOVIR [Concomitant]
     Dates: start: 20110127
  2. POVIDONE IODINE [Concomitant]
     Dates: start: 20110127
  3. PALONOSETRON HYDROCHLORIDE [Concomitant]
     Dates: start: 20110215, end: 20110420
  4. TRIMETHOPRIM + SULFAMETHOXAZOLE [Concomitant]
     Dates: start: 20110127
  5. GRANISETRON HCL [Concomitant]
     Dates: start: 20110125, end: 20110126
  6. TREANDA [Suspect]
     Route: 042
     Dates: start: 20110712
  7. DEXAMETHASONE [Concomitant]
     Dates: start: 20110215, end: 20110215
  8. ITRACONAZOLE [Concomitant]
     Dates: start: 20110127
  9. FAMOTIDINE [Concomitant]
  10. MECOBALAMIN [Concomitant]
  11. APREPITANT [Concomitant]
     Dates: start: 20110125, end: 20110421
  12. TREANDA [Suspect]
     Route: 042
     Dates: start: 20110419, end: 20110420
  13. TREANDA [Suspect]
     Indication: MANTLE CELL LYMPHOMA
     Route: 042
     Dates: start: 20110125, end: 20110126
  14. TREANDA [Suspect]
     Route: 042
     Dates: start: 20110215, end: 20110216
  15. MAGNESIUM OXIDE [Concomitant]
  16. LOXOPROFEN SODIUM [Concomitant]

REACTIONS (16)
  - PLATELET COUNT DECREASED [None]
  - HICCUPS [None]
  - FEBRILE NEUTROPENIA [None]
  - LEUKOPENIA [None]
  - BLOOD ALKALINE PHOSPHATASE INCREASED [None]
  - HAEMOGLOBIN DECREASED [None]
  - NAUSEA [None]
  - NEUTROPHIL COUNT DECREASED [None]
  - LYMPHOPENIA [None]
  - GRANULOCYTE COUNT DECREASED [None]
  - WHITE BLOOD CELL COUNT DECREASED [None]
  - HYPERKALAEMIA [None]
  - NEUTROPENIA [None]
  - LYMPHOCYTE COUNT DECREASED [None]
  - GAMMA-GLUTAMYLTRANSFERASE INCREASED [None]
  - VASCULITIS [None]
